FAERS Safety Report 9608057 (Version 2)
Quarter: 2013Q4

REPORT INFORMATION
  Report Type: Spontaneous
  Country: US (occurrence: US)
  Receive Date: 20131009
  Receipt Date: 20131009
  Transmission Date: 20140711
  Serious: No
  Sender: FDA-Public Use
  Company Number: US-PURDUE-USA-2012-0091966

PATIENT
  Sex: Female

DRUGS (3)
  1. BUTRANS [Suspect]
     Indication: FIBROMYALGIA
     Dosage: 5 MCG/HR, UNK
     Route: 062
     Dates: start: 20120819
  2. BUTRANS [Suspect]
     Indication: ARTHRITIS
  3. VICODIN [Concomitant]
     Indication: PAIN
     Dosage: UNK, PRN

REACTIONS (7)
  - Unevaluable event [Unknown]
  - Drug effect decreased [Not Recovered/Not Resolved]
  - Pain [Not Recovered/Not Resolved]
  - Product quality issue [Unknown]
  - Breakthrough pain [Not Recovered/Not Resolved]
  - Drug ineffective [Unknown]
  - Product adhesion issue [Unknown]
